FAERS Safety Report 19717648 (Version 1)
Quarter: 2021Q3

REPORT INFORMATION
  Report Type: Spontaneous
  Country: US (occurrence: US)
  Receive Date: 20210818
  Receipt Date: 20210818
  Transmission Date: 20211014
  Serious: No
  Sender: FDA-Public Use
  Company Number: None

PATIENT
  Age: 81 Year
  Sex: Male

DRUGS (1)
  1. CLONIDINE (CLONIDINE 0.1MG/24HRS PATCH) [Suspect]
     Active Substance: CLONIDINE
     Indication: HYPERTENSION
     Dates: start: 20210722, end: 20210806

REACTIONS (4)
  - Application site irritation [None]
  - Application site erythema [None]
  - Application site rash [None]
  - Application site discolouration [None]

NARRATIVE: CASE EVENT DATE: 20210816
